FAERS Safety Report 9665931 (Version 1)
Quarter: 2013Q4

REPORT INFORMATION
  Report Type: Spontaneous
  Country: US (occurrence: None)
  Receive Date: 20131101
  Receipt Date: 20131101
  Transmission Date: 20140711
  Serious: Yes (Other)
  Sender: FDA-Public Use
  Company Number: None

PATIENT
  Age: 62 Year
  Sex: Female
  Weight: 58.97 kg

DRUGS (1)
  1. LEVOFLOXACIN 500 MG ?? [Suspect]
     Indication: EAR INFECTION
     Dosage: 1 PILL
     Route: 048
     Dates: start: 20130828, end: 20130908

REACTIONS (1)
  - Tendonitis [None]
